FAERS Safety Report 16443100 (Version 3)
Quarter: 2021Q1

REPORT INFORMATION
  Report Type: Other
  Country: FR (occurrence: FR)
  Receive Date: 20190617
  Receipt Date: 20210202
  Transmission Date: 20210419
  Serious: Yes (Death, Other)
  Sender: FDA-Public Use
  Company Number: FR-CELLTRION INC.-2019FR021902

PATIENT

DRUGS (10)
  1. IMBRUVICA [Suspect]
     Active Substance: IBRUTINIB
     Indication: WALDENSTROM^S MACROGLOBULINAEMIA
     Dosage: 1 DF, ONCE DAILY
     Route: 048
     Dates: start: 20170104
  2. LAROXYL [Suspect]
     Active Substance: AMITRIPTYLINE HYDROCHLORIDE
     Indication: NEURALGIA
     Dosage: 15 MG
     Route: 048
  3. OXYCONTIN [Suspect]
     Active Substance: OXYCODONE HYDROCHLORIDE
     Indication: PAIN
     Dosage: 140 MG, EVERY DAY
     Route: 048
  4. METHYLPREDNISOLONE. [Suspect]
     Active Substance: METHYLPREDNISOLONE
     Indication: SQUAMOUS CELL CARCINOMA
     Dosage: 40 MG, EVERY WEEK
     Route: 042
     Dates: start: 20190131
  5. TOLEXINE [DOXYCYCLINE HYDROCHLORIDE] [Suspect]
     Active Substance: DOXYCYCLINE HYDROCHLORIDE
     Indication: ACNE
     Dosage: 1 DF, EVERY DAY
     Route: 048
     Dates: start: 201901
  6. FLUOROURACILE [Suspect]
     Active Substance: FLUOROURACIL
     Indication: SQUAMOUS CELL CARCINOMA
     Dosage: 7200MG
     Route: 042
     Dates: start: 20190208, end: 20190324
  7. ERBITUX [Suspect]
     Active Substance: CETUXIMAB
     Indication: SQUAMOUS CELL CARCINOMA
     Dosage: 445 MG, EVERY WEEK
     Route: 042
     Dates: start: 20190131
  8. RITUXIMAB (UNKNOWN) [Suspect]
     Active Substance: RITUXIMAB
     Indication: WALDENSTROM^S MACROGLOBULINAEMIA
     Dosage: 700 MG EVERY 21 DAYS
     Route: 042
     Dates: start: 20180924, end: 20190115
  9. CLAIRYG [Suspect]
     Active Substance: HUMAN IMMUNOGLOBULIN G
     Indication: SQUAMOUS CELL CARCINOMA
     Dosage: 20 MG, EVERY MONTH
     Route: 042
     Dates: start: 2018
  10. CISPLATINE [Suspect]
     Active Substance: CISPLATIN
     Indication: SQUAMOUS CELL CARCINOMA
     Dosage: 413 MG
     Route: 042
     Dates: start: 20190208, end: 20190320

REACTIONS (3)
  - Off label use [Unknown]
  - Squamous cell carcinoma [Fatal]
  - Deafness unilateral [Not Recovered/Not Resolved]

NARRATIVE: CASE EVENT DATE: 20190427
